FAERS Safety Report 25823879 (Version 1)
Quarter: 2025Q3

REPORT INFORMATION
  Report Type: Spontaneous
  Country: US (occurrence: US)
  Receive Date: 20250919
  Receipt Date: 20250919
  Transmission Date: 20251020
  Serious: No
  Sender: ANI
  Company Number: US-ANIPHARMA-2025-US-023307

PATIENT
  Age: 61 Year
  Sex: Male

DRUGS (15)
  1. CORTICOTROPIN [Suspect]
     Active Substance: CORTICOTROPIN
     Indication: Cardiac sarcoidosis
     Route: 058
  2. NITROSTAT [Concomitant]
     Active Substance: NITROGLYCERIN
  3. ACIPHEX [Concomitant]
     Active Substance: RABEPRAZOLE SODIUM
  4. TORSEMIDE [Concomitant]
     Active Substance: TORSEMIDE
  5. ENTRESTO [Concomitant]
     Active Substance: SACUBITRIL\VALSARTAN
  6. METOPROLOL TARTRATE [Concomitant]
     Active Substance: METOPROLOL TARTRATE
  7. TAMSULOSIN HYDROCHLORIDE [Concomitant]
     Active Substance: TAMSULOSIN HYDROCHLORIDE
  8. LANTUS [Concomitant]
     Active Substance: INSULIN GLARGINE
  9. METFORMIN HYDROCHLORIDE [Concomitant]
     Active Substance: METFORMIN HYDROCHLORIDE
  10. GABAPENTIN [Concomitant]
     Active Substance: GABAPENTIN
  11. VOLTAREN [Concomitant]
     Active Substance: DICLOFENAC SODIUM
  12. CLARITIN [Concomitant]
     Active Substance: LORATADINE
  13. CYMBALTA [Concomitant]
     Active Substance: DULOXETINE HYDROCHLORIDE
  14. METHOCARBAMOL [Concomitant]
     Active Substance: METHOCARBAMOL
  15. JARDIANCE [Concomitant]
     Active Substance: EMPAGLIFLOZIN

REACTIONS (1)
  - Contusion [Unknown]
